FAERS Safety Report 7045826-3 (Version None)
Quarter: 2010Q4

REPORT INFORMATION
  Report Type: 
  Country: None (occurrence: None)
  Receive Date: 20101014
  Receipt Date: 20101006
  Transmission Date: 20110411
  Serious: No
  Sender: FDA-Public Use
  Company Number: US-B.I. PHARMACEUTICALS,INC./RIDGEFIELD-2010-BP-09953BP

PATIENT
  Age: 59 Year
  Sex: Male
  Weight: 101.15 kg

DRUGS (5)
  1. MICARDIS [Suspect]
     Indication: HYPERTENSION
     Dosage: 40 MG
     Dates: start: 20100804, end: 20100816
  2. PROPRANOLOL [Concomitant]
  3. HYDROCHLOROTHIAZIDE [Concomitant]
     Dosage: 12.5 MG
  4. METHIMAZOLE [Concomitant]
     Dosage: 30 MG
  5. VITAMIN D3 [Concomitant]
     Dosage: 5000 U

REACTIONS (6)
  - ANGER [None]
  - ANXIETY [None]
  - APATHY [None]
  - DEPRESSION [None]
  - PSYCHOTIC DISORDER [None]
  - SOCIAL AVOIDANT BEHAVIOUR [None]
